FAERS Safety Report 6129569-6 (Version None)
Quarter: 2009Q1

REPORT INFORMATION
  Report Type: 
  Country: None (occurrence: None)
  Receive Date: 20090324
  Receipt Date: 20090311
  Transmission Date: 20090719
  Serious: Yes (Hospitalization)
  Sender: FDA-Public Use
  Company Number: FR-PFIZER INC-2009183800

PATIENT

DRUGS (18)
  1. ATARAX [Suspect]
     Dosage: UNK
     Route: 048
  2. ATARAX [Suspect]
     Dosage: UNK
     Route: 048
  3. PRAZEPAM [Suspect]
     Dosage: UNK
     Route: 048
  4. PRAZEPAM [Suspect]
     Dosage: UNK
     Route: 048
  5. ALPRAZOLAM [Suspect]
     Dosage: UNK
     Route: 048
  6. ALPRAZOLAM [Suspect]
     Dosage: UNK
     Route: 048
  7. METHADONE [Suspect]
     Dosage: UNK
     Route: 048
  8. METHADONE [Suspect]
     Dosage: UNK
     Route: 048
  9. ZOPICLONE [Suspect]
     Dosage: UNK
     Route: 048
  10. ZOPICLONE [Suspect]
     Dosage: UNK
  11. LORMETAZEPAM [Suspect]
     Dosage: UNK
     Route: 048
  12. LORMETAZEPAM [Suspect]
     Dosage: UNK
     Route: 048
  13. TRINITRINE [Suspect]
     Dosage: UNK
     Route: 048
  14. TRINITRINE [Suspect]
     Dosage: UNK
     Route: 048
  15. ARIPIPRAZOLE [Suspect]
     Dosage: UNK
     Route: 048
  16. ARIPIPRAZOLE [Suspect]
     Dosage: UNK
     Route: 048
  17. CLOMIPRAMINE HYDROCHLORIDE [Suspect]
     Dosage: UNK
     Route: 048
  18. CLOMIPRAMINE HYDROCHLORIDE [Suspect]
     Dosage: UNK

REACTIONS (8)
  - ABNORMAL BEHAVIOUR [None]
  - ACIDOSIS [None]
  - CYANOSIS [None]
  - DRUG TOXICITY [None]
  - HAEMODYNAMIC INSTABILITY [None]
  - RESPIRATORY ARREST [None]
  - SUICIDE ATTEMPT [None]
  - TRANSAMINASES INCREASED [None]
